FAERS Safety Report 23544825 (Version 3)
Quarter: 2025Q3

REPORT INFORMATION
  Report Type: Spontaneous
  Country: US (occurrence: None)
  Receive Date: 20240220
  Receipt Date: 20250704
  Transmission Date: 20251021
  Serious: Yes (Hospitalization)
  Sender: MDD OPERATIONS
  Company Number: US-MDD US Operations-MDD202312-004893

PATIENT
  Age: 66 Year
  Sex: Female

DRUGS (5)
  1. APOKYN [Suspect]
     Active Substance: APOMORPHINE HYDROCHLORIDE
     Indication: Parkinson^s disease
     Route: 058
     Dates: start: 20231205
  2. APOKYN [Suspect]
     Active Substance: APOMORPHINE HYDROCHLORIDE
     Dates: start: 20231205
  3. APOKYN [Suspect]
     Active Substance: APOMORPHINE HYDROCHLORIDE
     Route: 058
  4. CARBIDOPA [Concomitant]
     Active Substance: CARBIDOPA
  5. LEVODOPA [Concomitant]
     Active Substance: LEVODOPA

REACTIONS (6)
  - Coronary artery occlusion [Not Recovered/Not Resolved]
  - Speech disorder [Unknown]
  - Dizziness [Recovered/Resolved]
  - Blood pressure decreased [Recovered/Resolved]
  - Device breakage [Unknown]
  - Product use issue [Unknown]

NARRATIVE: CASE EVENT DATE: 20231213
